FAERS Safety Report 14076353 (Version 1)
Quarter: 2017Q4

REPORT INFORMATION
  Report Type: Spontaneous
  Country: US (occurrence: US)
  Receive Date: 20171011
  Receipt Date: 20171011
  Transmission Date: 20180321
  Serious: Yes (Other)
  Sender: FDA-Public Use
  Company Number: US-BAYER-2017-195228

PATIENT

DRUGS (2)
  1. ANTIHEMOPHILIC FACTOR VIII, PLASMA/ALBUMIN-FREE (RECOMBINANT) [Concomitant]
     Dosage: 3500 UNK, UNK
  2. BAYER ASPIRIN [Suspect]
     Active Substance: ASPIRIN

REACTIONS (2)
  - Drug hypersensitivity [Unknown]
  - Haemorrhage [None]
